FAERS Safety Report 7592665-0 (Version None)
Quarter: 2011Q3

REPORT INFORMATION
  Report Type: 
  Country: None (occurrence: None)
  Receive Date: 20110706
  Receipt Date: 20110623
  Transmission Date: 20111222
  Serious: Yes (Other)
  Sender: FDA-Public Use
  Company Number: AU-ELI_LILLY_AND_COMPANY-AU201008002035

PATIENT
  Sex: Female
  Weight: 70 kg

DRUGS (12)
  1. COUMADIN [Concomitant]
     Indication: PULMONARY EMBOLISM
     Dosage: 7 MG, QD
     Route: 065
  2. FORTEO [Suspect]
     Dosage: 20 UG, DAILY (1/D)
     Route: 058
     Dates: start: 20100802, end: 20100802
  3. FUROSEMIDE [Concomitant]
     Dosage: 20 MG, UNK
  4. NEXIUM [Concomitant]
     Indication: GASTROOESOPHAGEAL REFLUX DISEASE
     Dosage: 20 MG, QD
     Route: 065
  5. KEFLEX [Concomitant]
     Dosage: 250 MG, DAILY (1/D)
     Route: 065
  6. GAVISCON [Concomitant]
     Dosage: UNK, PRN
  7. PROCHLORPERAZINE [Concomitant]
     Dosage: 5 MG, TID
  8. FORTEO [Suspect]
     Indication: OSTEOPOROSIS
     Dosage: 20 UG, DAILY (1/D)
     Route: 058
     Dates: start: 20100517, end: 20100517
  9. PHYSEPTONE [Concomitant]
     Indication: PAIN
     Dosage: 10 MG, 3/D
     Route: 065
  10. MOVIPREP [Concomitant]
     Indication: CONSTIPATION
     Dosage: UNK, UNKNOWN
     Route: 065
  11. VALIUM [Concomitant]
     Indication: PAIN
     Dosage: 2 MG, 3/D
     Route: 065
  12. CALCIUM CARBONATE [Concomitant]
     Indication: OSTEOPOROSIS
     Dosage: 600 MG, DAILY (1/D)
     Route: 048

REACTIONS (2)
  - DYSPNOEA [None]
  - DRUG HYPERSENSITIVITY [None]
